FAERS Safety Report 11689466 (Version 3)
Quarter: 2015Q4

REPORT INFORMATION
  Report Type: Spontaneous
  Country: US (occurrence: US)
  Receive Date: 20151102
  Receipt Date: 20151221
  Transmission Date: 20160304
  Serious: Yes (Death, Hospitalization)
  Sender: FDA-Public Use
  Company Number: US-UNITED THERAPEUTICS-UNT-2015-012971

PATIENT
  Sex: Female

DRUGS (4)
  1. ORENITRAM [Suspect]
     Active Substance: TREPROSTINIL
     Indication: PULMONARY ARTERIAL HYPERTENSION
     Dosage: 1.875 MG, TID
     Route: 048
     Dates: start: 20150730
  2. ORENITRAM [Suspect]
     Active Substance: TREPROSTINIL
     Dosage: 2 MG, TID
     Route: 048
     Dates: start: 20151010
  3. ORENITRAM [Suspect]
     Active Substance: TREPROSTINIL
     Dosage: 2.5 MG, TID
     Route: 048
     Dates: start: 20151007, end: 20151009
  4. ORENITRAM [Suspect]
     Active Substance: TREPROSTINIL
     Dosage: 2.25 MG, TID
     Route: 048

REACTIONS (6)
  - Oedema peripheral [Unknown]
  - Right ventricular dysfunction [Unknown]
  - Dyspnoea [Unknown]
  - Abdominal distension [Unknown]
  - Pulmonary arterial hypertension [Unknown]
  - Death [Fatal]

NARRATIVE: CASE EVENT DATE: 2015
